FAERS Safety Report 16624643 (Version 1)
Quarter: 2019Q3

REPORT INFORMATION
  Report Type: Spontaneous
  Country: US (occurrence: US)
  Receive Date: 20190723
  Receipt Date: 20190723
  Transmission Date: 20191004
  Serious: Yes (Life-Threatening, Hospitalization)
  Sender: FDA-Public Use
  Company Number: None

PATIENT
  Age: 67 Year
  Sex: Male
  Weight: 76.5 kg

DRUGS (23)
  1. METOLAZONE. [Concomitant]
     Active Substance: METOLAZONE
  2. TRAMADOL. [Concomitant]
     Active Substance: TRAMADOL
  3. MAGNESIUM OXIDE. [Concomitant]
     Active Substance: MAGNESIUM OXIDE
  4. POTASSIUM CHLORIDE. [Concomitant]
     Active Substance: POTASSIUM CHLORIDE
  5. COZAAR [Suspect]
     Active Substance: LOSARTAN POTASSIUM
  6. ALOGLIPTIN. [Concomitant]
     Active Substance: ALOGLIPTIN
  7. METHOCARBAMOL. [Concomitant]
     Active Substance: METHOCARBAMOL
  8. ISOSORBIDE DINITRATE. [Concomitant]
     Active Substance: ISOSORBIDE DINITRATE
  9. RANTINANIDE [Concomitant]
  10. CYANOCOBALAMIN. [Concomitant]
     Active Substance: CYANOCOBALAMIN
  11. CHOLECALCIFEROL [Concomitant]
     Active Substance: CHOLECALCIFEROL
  12. ASPIRIN. [Concomitant]
     Active Substance: ASPIRIN
  13. BUMETANIDE. [Concomitant]
     Active Substance: BUMETANIDE
  14. METOPROLOL SUCCINATE. [Concomitant]
     Active Substance: METOPROLOL SUCCINATE
  15. VITAMIN B12 [Concomitant]
     Active Substance: CYANOCOBALAMIN
  16. VITAMIN D3 [Concomitant]
     Active Substance: CHOLECALCIFEROL
  17. ATORVASTATIN [Concomitant]
     Active Substance: ATORVASTATIN
  18. HYDRALAZINE [Concomitant]
     Active Substance: HYDRALAZINE HYDROCHLORIDE
  19. PREGABALIN. [Concomitant]
     Active Substance: PREGABALIN
  20. FLOMAX [Concomitant]
     Active Substance: TAMSULOSIN HYDROCHLORIDE
  21. IRON [Concomitant]
     Active Substance: IRON
  22. SODIUM CHLORIDE. [Concomitant]
     Active Substance: SODIUM CHLORIDE
  23. CARBOXYMETHYCELLULOSE SODIUM [Concomitant]

REACTIONS (4)
  - Drug hypersensitivity [None]
  - Dysuria [None]
  - Fluid retention [None]
  - Multiple organ dysfunction syndrome [None]

NARRATIVE: CASE EVENT DATE: 20181218
